FAERS Safety Report 18118036 (Version 1)
Quarter: 2020Q3

REPORT INFORMATION
  Report Type: Spontaneous
  Country: US (occurrence: US)
  Receive Date: 20200805
  Receipt Date: 20200805
  Transmission Date: 20201103
  Serious: No
  Sender: FDA-Public Use
  Company Number: None

PATIENT
  Age: 49 Year
  Weight: 133.4 kg

DRUGS (1)
  1. ORENCIA [Suspect]
     Active Substance: ABATACEPT
     Indication: RHEUMATOID ARTHRITIS
     Dosage: ?          OTHER FREQUENCY:ONCE A WEEK;?
     Route: 058
     Dates: start: 20170322

REACTIONS (12)
  - Irritability [None]
  - Coronavirus infection [None]
  - Chest pain [None]
  - Dysgeusia [None]
  - Therapy interrupted [None]
  - Malaise [None]
  - Pyrexia [None]
  - Dyspnoea [None]
  - Loss of personal independence in daily activities [None]
  - Confusional state [None]
  - Fatigue [None]
  - Anosmia [None]

NARRATIVE: CASE EVENT DATE: 20200505
